FAERS Safety Report 12158150 (Version 1)
Quarter: 2016Q1

REPORT INFORMATION
  Report Type: Spontaneous
  Country: US (occurrence: US)
  Receive Date: 20160308
  Receipt Date: 20160308
  Transmission Date: 20160526
  Serious: No
  Sender: FDA-Public Use
  Company Number: US-JNJFOC-20150220397

PATIENT
  Age: 53 Year
  Sex: Male

DRUGS (20)
  1. ATIVAN [Concomitant]
     Active Substance: LORAZEPAM
  2. PREDNISONE. [Concomitant]
     Active Substance: PREDNISONE
  3. SIMETHICONE (DIMETHICONE) [Concomitant]
     Active Substance: DIMETHICONE
  4. DEXAMETHASONE. [Concomitant]
     Active Substance: DEXAMETHASONE
  5. LEVAQUIN [Concomitant]
     Active Substance: LEVOFLOXACIN
  6. POSACONAZOLE [Concomitant]
     Active Substance: POSACONAZOLE
  7. CETIRIZINE [Concomitant]
     Active Substance: CETIRIZINE HYDROCHLORIDE
  8. BECLOMETHASONE [Concomitant]
     Active Substance: BECLOMETHASONE
  9. KLOR-CON [Concomitant]
     Active Substance: POTASSIUM CHLORIDE
  10. PENTAMIDINE [Concomitant]
     Active Substance: PENTAMIDINE
  11. TACROLIMUS. [Concomitant]
     Active Substance: TACROLIMUS
  12. VALGANCICLOVIR [Concomitant]
     Active Substance: VALGANCICLOVIR
  13. BENTYL [Concomitant]
     Active Substance: DICYCLOMINE HYDROCHLORIDE
  14. BUDESONIDE. [Concomitant]
     Active Substance: BUDESONIDE
  15. DRISDOL [Concomitant]
     Active Substance: ERGOCALCIFEROL
  16. IMBRUVICA [Suspect]
     Active Substance: IBRUTINIB
     Indication: LYMPHOMA
     Route: 048
     Dates: start: 20150211
  17. CLOTRIMAZOLE. [Concomitant]
     Active Substance: CLOTRIMAZOLE
  18. PRILOSEC [Concomitant]
     Active Substance: OMEPRAZOLE MAGNESIUM
  19. SIROLIMUS. [Concomitant]
     Active Substance: SIROLIMUS
  20. URSODIOL. [Concomitant]
     Active Substance: URSODIOL

REACTIONS (1)
  - Joint lock [Recovered/Resolved]

NARRATIVE: CASE EVENT DATE: 201502
